FAERS Safety Report 12912546 (Version 3)
Quarter: 2017Q1

REPORT INFORMATION
  Report Type: Spontaneous
  Country: US (occurrence: US)
  Receive Date: 20161104
  Receipt Date: 20170308
  Transmission Date: 20170428
  Serious: No
  Sender: FDA-Public Use
  Company Number: US-PFIZER INC-2016511533

PATIENT
  Age: 80 Year
  Sex: Female

DRUGS (18)
  1. HYDROCODONE/ACETAMINOPHEN [Concomitant]
     Active Substance: ACETAMINOPHEN\HYDROCODONE
  2. POTASSIUM [Concomitant]
     Active Substance: POTASSIUM
  3. VENTOLIN HFA [Concomitant]
     Active Substance: ALBUTEROL SULFATE
  4. IBRANCE [Suspect]
     Active Substance: PALBOCICLIB
     Indication: BREAST CANCER FEMALE
     Dosage: 125 MG, CYCLIC (21DAYS ON/ 7 DAYS OFF)
     Dates: start: 20161027, end: 20161028
  5. TOPROL XL [Concomitant]
     Active Substance: METOPROLOL SUCCINATE
  6. ASPIRIN. [Concomitant]
     Active Substance: ASPIRIN
     Dosage: 81 MG, UNK
  7. CLINDAMYCIN. [Concomitant]
     Active Substance: CLINDAMYCIN
  8. LOSARTAN. [Concomitant]
     Active Substance: LOSARTAN
  9. LUMIGAN [Concomitant]
     Active Substance: BIMATOPROST
  10. MELOXICAM. [Concomitant]
     Active Substance: MELOXICAM
  11. VITAMIN D3 [Concomitant]
     Active Substance: CHOLECALCIFEROL
  12. BENADRYL [Concomitant]
     Active Substance: DIPHENHYDRAMINE HYDROCHLORIDE
  13. NYSTATIN. [Concomitant]
     Active Substance: NYSTATIN
  14. SIMBRINZA [Concomitant]
     Active Substance: BRIMONIDINE TARTRATE\BRINZOLAMIDE
  15. IBRANCE [Suspect]
     Active Substance: PALBOCICLIB
     Dosage: 125 MG, UNK
     Dates: start: 20161020
  16. ANASTROZOLE. [Concomitant]
     Active Substance: ANASTROZOLE
     Indication: BREAST CANCER FEMALE
  17. GLIPIZIDE. [Concomitant]
     Active Substance: GLIPIZIDE
  18. HYDROCORTISONE. [Concomitant]
     Active Substance: HYDROCORTISONE

REACTIONS (6)
  - Feeling hot [Unknown]
  - Presyncope [Unknown]
  - Asthenia [Unknown]
  - Feeling jittery [Unknown]
  - Hyperhidrosis [Unknown]
  - Nervousness [Unknown]

NARRATIVE: CASE EVENT DATE: 201610
